FAERS Safety Report 8213460-5 (Version None)
Quarter: 2012Q1

REPORT INFORMATION
  Report Type: 
  Country: None (occurrence: None)
  Receive Date: 20120315
  Receipt Date: 20120307
  Transmission Date: 20120608
  Serious: Yes (Other)
  Sender: FDA-Public Use
  Company Number: KR-ABBOTT-12P-090-0913339-00

PATIENT

DRUGS (3)
  1. ARIPIPRAZOLE [Concomitant]
     Indication: BIPOLAR I DISORDER
  2. VALPROATE SODIUM [Suspect]
     Indication: BIPOLAR I DISORDER
  3. ARIPIPRAZOLE [Concomitant]
     Dosage: 10-30MG

REACTIONS (1)
  - INTENTIONAL SELF-INJURY [None]
